FAERS Safety Report 7587624-8 (Version None)
Quarter: 2011Q3

REPORT INFORMATION
  Report Type: 
  Country: None (occurrence: None)
  Receive Date: 20110704
  Receipt Date: 20110623
  Transmission Date: 20111222
  Serious: Yes (Death, Hospitalization)
  Sender: FDA-Public Use
  Company Number: PHHY2010JP26751

PATIENT
  Age: 69 Year
  Sex: Male

DRUGS (9)
  1. NIFEDIPINE [Concomitant]
     Indication: APLASTIC ANAEMIA
     Dosage: 20 MG, UNK
     Route: 048
     Dates: start: 20100426
  2. PRIMOBOLAN-DEPOT INJ [Concomitant]
     Dosage: 15 MG, UNK
     Route: 048
  3. CANDESARTAN CILEXETIL [Concomitant]
     Dosage: 8 MG, UNK
     Route: 048
  4. EXJADE [Suspect]
     Indication: IRON OVERLOAD
     Dosage: 1000 MG, DAILY
     Route: 048
     Dates: start: 20090929, end: 20091222
  5. RED BLOOD CELLS, CONCENTRATED [Concomitant]
     Dosage: 6 U, EVERY 4 WEEKS
     Dates: end: 20100420
  6. URINORM [Concomitant]
     Dosage: 50 MG, UNK
     Route: 048
  7. ZOLPIDEM [Concomitant]
     Dosage: 10 MG, UNK
     Route: 048
  8. EXJADE [Suspect]
     Dosage: 1000 MG, DAILY
     Route: 048
     Dates: start: 20100406, end: 20100426
  9. URALYT [Concomitant]
     Dosage: 1 DF, UNK
     Route: 048

REACTIONS (9)
  - GANGRENE [None]
  - NECROTISING FASCIITIS [None]
  - BLOOD CREATININE INCREASED [None]
  - BACTERIAL SEPSIS [None]
  - AEROMONA INFECTION [None]
  - PAIN IN EXTREMITY [None]
  - BLOOD CREATINE PHOSPHOKINASE INCREASED [None]
  - CLOSTRIDIAL INFECTION [None]
  - C-REACTIVE PROTEIN INCREASED [None]
